FAERS Safety Report 18183096 (Version 3)
Quarter: 2020Q4

REPORT INFORMATION
  Report Type: Report from Study
  Country: US (occurrence: US)
  Receive Date: 20200821
  Receipt Date: 20201130
  Transmission Date: 20210113
  Serious: No
  Sender: FDA-Public Use
  Company Number: NVSC2020US231021

PATIENT
  Sex: Male

DRUGS (1)
  1. COSENTYX [Suspect]
     Active Substance: SECUKINUMAB
     Indication: PSORIASIS
     Dosage: 300 MG, QW (ONCE A WEEK FOR 5 WEEKS AND THEN Q 4 WEEKS)
     Route: 058

REACTIONS (2)
  - Therapeutic product effect incomplete [Recovering/Resolving]
  - Psoriasis [Not Recovered/Not Resolved]
